FAERS Safety Report 5211820-8 (Version None)
Quarter: 2007Q1

REPORT INFORMATION
  Report Type: 
  Country: None (occurrence: None)
  Receive Date: 20070118
  Receipt Date: 20070105
  Transmission Date: 20070707
  Serious: Yes (Hospitalization, Other)
  Sender: FDA-Public Use
  Company Number: CA-ELI_LILLY_AND_COMPANY-CA200701000162

PATIENT
  Age: 75 Year
  Sex: Female

DRUGS (15)
  1. FORTEO [Suspect]
     Indication: OSTEOPOROSIS
     Dosage: 20 UG, DAILY (1/D)
     Route: 058
     Dates: start: 20060512
  2. ELTROXIN [Concomitant]
  3. OMEPRAZOLE [Concomitant]
  4. LIPITOR [Concomitant]
  5. DICLOFENAC SODIUM W/MISOPROSTOL [Concomitant]
  6. LORAZEPAM [Concomitant]
  7. PREDNISONE [Concomitant]
  8. TYLENOL W/ CODEINE NO. 3 [Concomitant]
  9. VITAMIN E [Concomitant]
  10. ASCORBIC ACID [Concomitant]
  11. VITAMIN CAP [Concomitant]
  12. HALIBUT-LIVER OIL [Concomitant]
  13. CALCIUM [Concomitant]
  14. LECITHIN [Concomitant]
  15. EVENING PRIMROSE OIL [Concomitant]

REACTIONS (1)
  - FEMUR FRACTURE [None]
